FAERS Safety Report 4895018-9 (Version None)
Quarter: 2006Q1

REPORT INFORMATION
  Report Type: 
  Country: None (occurrence: None)
  Receive Date: 20060127
  Receipt Date: 20060127
  Transmission Date: 20060701
  Serious: Yes (Other)
  Sender: FDA-Public Use
  Company Number: None

PATIENT
  Weight: 13.9 kg

DRUGS (3)
  1. CYCLOPHOSPHAMIDE [Suspect]
     Indication: NEUROBLASTOMA
     Dosage: SEE IMAGE
     Dates: start: 20050720, end: 20050721
  2. DOXORUBICIN HCL [Suspect]
     Dosage: SEE IMAGE
     Dates: start: 20050720, end: 20050721
  3. MESNA [Suspect]
     Dosage: SEE IMAGE
     Dates: start: 20050720, end: 20050721

REACTIONS (12)
  - BLOOD PRESSURE INCREASED [None]
  - BLOOD URINE [None]
  - CARDIAC FAILURE CONGESTIVE [None]
  - DILATATION VENTRICULAR [None]
  - DISEASE PROGRESSION [None]
  - ECHOCARDIOGRAM ABNORMAL [None]
  - MITRAL VALVE INCOMPETENCE [None]
  - NOCARDIOSIS [None]
  - PERICARDIAL EFFUSION [None]
  - PLEURAL EFFUSION [None]
  - PULMONARY OEDEMA [None]
  - TACHYCARDIA [None]
